FAERS Safety Report 5221092-6 (Version None)
Quarter: 2007Q1

REPORT INFORMATION
  Report Type: 
  Country: None (occurrence: None)
  Receive Date: 20070123
  Receipt Date: 20070111
  Transmission Date: 20070707
  Serious: Yes (Hospitalization, Other)
  Sender: FDA-Public Use
  Company Number: HQWYE190121NOV06

PATIENT
  Age: 54 Year
  Sex: Male
  Weight: 78.54 kg

DRUGS (17)
  1. PROGRAF [Suspect]
     Indication: PROPHYLAXIS AGAINST TRANSPLANT REJECTION
     Dosage: 3 MG 1X PER 1 DAY, ORAL
     Route: 048
     Dates: start: 20020731, end: 20060101
  2. MYCOPHENOLIC ACID [Suspect]
     Dosage: 720 MG 2X PER 1 DAY, ORAL
     Route: 048
  3. PREDNISONE TAB [Suspect]
     Dosage: 5 MG 1X PER 1 DAY, ORAL
     Route: 048
  4. PROGRAF [Suspect]
     Indication: PROPHYLAXIS AGAINST TRANSPLANT REJECTION
     Dosage: 0.5 MG 2X PER 1 DAY, ORAL; SEE IMAGE
     Route: 048
     Dates: start: 20060101, end: 20061101
  5. PROGRAF [Suspect]
     Indication: PROPHYLAXIS AGAINST TRANSPLANT REJECTION
     Dosage: 0.5 MG 2X PER 1 DAY, ORAL; SEE IMAGE
     Route: 048
     Dates: start: 20061101
  6. IRON (IRON) [Concomitant]
  7. BACTRIM [Concomitant]
  8. MYCELEX [Concomitant]
  9. VALCYTE [Concomitant]
  10. MINOXIDIL [Concomitant]
  11. FELODIPINE [Concomitant]
  12. MAGNESIUM OXIDE (MAGNESIUM OXIDE) [Concomitant]
  13. ZOCOR [Concomitant]
  14. TRAVATAN [Concomitant]
  15. LANTUS [Concomitant]
  16. LANTUS [Concomitant]
  17. LANTUS [Concomitant]

REACTIONS (4)
  - HAEMATOCRIT DECREASED [None]
  - PERICARDIAL EFFUSION [None]
  - PERICARDITIS [None]
  - VIRAL INFECTION [None]
